FAERS Safety Report 8200935-8 (Version None)
Quarter: 2012Q1

REPORT INFORMATION
  Report Type: 
  Country: None (occurrence: None)
  Receive Date: 20120312
  Receipt Date: 20111005
  Transmission Date: 20120608
  Serious: No
  Sender: FDA-Public Use
  Company Number: US-ABBOTT-11P-163-0854424-00

PATIENT
  Sex: Female
  Weight: 44.492 kg

DRUGS (2)
  1. UNKNOWN ASTHMA MEDICATION [Concomitant]
     Indication: PRODUCT USED FOR UNKNOWN INDICATION
  2. LUPRON DEPOT [Suspect]
     Indication: ENDOMETRIOSIS
     Route: 030
     Dates: start: 20110728

REACTIONS (11)
  - MOBILITY DECREASED [None]
  - FATIGUE [None]
  - INJECTION SITE PRURITUS [None]
  - URINARY TRACT INFECTION [None]
  - MYALGIA [None]
  - DECREASED APPETITE [None]
  - PAIN IN EXTREMITY [None]
  - OEDEMA PERIPHERAL [None]
  - INJECTION SITE SWELLING [None]
  - FEELING HOT [None]
  - INJECTION SITE ERYTHEMA [None]
